FAERS Safety Report 4736867-7 (Version None)
Quarter: 2005Q3

REPORT INFORMATION
  Report Type: 
  Country: None (occurrence: None)
  Receive Date: 20050808
  Receipt Date: 20050804
  Transmission Date: 20060218
  Serious: Yes (Other)
  Sender: FDA-Public Use
  Company Number: US-GLAXOSMITHKLINE-A0568980A

PATIENT
  Age: 69 Year
  Sex: Female

DRUGS (4)
  1. AVANDAMET [Suspect]
     Dosage: 1TAB TWICE PER DAY
     Route: 048
     Dates: start: 20050803
  2. NOVOLOG [Concomitant]
  3. NEXIUM [Concomitant]
  4. MINIPRESS [Concomitant]

REACTIONS (6)
  - ABDOMINAL PAIN UPPER [None]
  - BACK PAIN [None]
  - BURNING SENSATION [None]
  - FLATULENCE [None]
  - HYPOGLYCAEMIA [None]
  - NAUSEA [None]
